FAERS Safety Report 15724363 (Version 3)
Quarter: 2019Q1

REPORT INFORMATION
  Report Type: Spontaneous
  Country: US (occurrence: US)
  Receive Date: 20181214
  Receipt Date: 20190204
  Transmission Date: 20190417
  Serious: Yes (Other)
  Sender: FDA-Public Use
  Company Number: US-BAYER-2018-229625

PATIENT
  Age: 40 Year
  Sex: Female

DRUGS (6)
  1. SYMBICORT [Concomitant]
     Active Substance: BUDESONIDE\FORMOTEROL FUMARATE DIHYDRATE
  2. CYCLOBENZAPRINE. [Concomitant]
     Active Substance: CYCLOBENZAPRINE
     Dosage: 10 MG
     Route: 048
  3. MIRENA [Suspect]
     Active Substance: LEVONORGESTREL
     Indication: CONTRACEPTION
     Dosage: 20 MCG/24HR, CONT
     Route: 015
     Dates: start: 20120208, end: 20170315
  4. MIRENA [Suspect]
     Active Substance: LEVONORGESTREL
     Indication: MENORRHAGIA
     Dosage: 20 MCG/24HR, CONT
     Route: 015
     Dates: start: 20170315, end: 20170324
  5. MIRENA [Suspect]
     Active Substance: LEVONORGESTREL
  6. SINGULAIR [Concomitant]
     Active Substance: MONTELUKAST SODIUM
     Dosage: 10 MG, QD
     Route: 048

REACTIONS (10)
  - Back pain [None]
  - Post procedural haemorrhage [None]
  - Pollakiuria [None]
  - Abdominal pain [None]
  - Device use issue [Recovered/Resolved]
  - Back pain [None]
  - Pyrexia [None]
  - Pelvic pain [None]
  - Abdominal pain lower [Not Recovered/Not Resolved]
  - Post procedural haemorrhage [None]

NARRATIVE: CASE EVENT DATE: 20170208
